FAERS Safety Report 5199004-3 (Version None)
Quarter: 2007Q1

REPORT INFORMATION
  Report Type: 
  Country: None (occurrence: None)
  Receive Date: 20070104
  Receipt Date: 20070104
  Transmission Date: 20070707
  Serious: Yes (Life-Threatening)
  Sender: FDA-Public Use
  Company Number: FR-BRISTOL-MYERS SQUIBB COMPANY-12605135

PATIENT
  Age: 43 Year
  Sex: Female

DRUGS (5)
  1. KENACORT [Suspect]
     Indication: PAIN
     Dosage: 80MG/2ML
     Route: 033
     Dates: start: 20040430, end: 20040430
  2. NAROPEINE [Suspect]
     Indication: PAIN
     Route: 033
     Dates: start: 20040430, end: 20040430
  3. KETAMINE HCL [Suspect]
     Indication: PAIN
     Route: 033
     Dates: start: 20040430, end: 20040430
  4. TENORDATE [Concomitant]
     Dates: end: 20040430
  5. PERINDOPRIL ERBUMINE [Concomitant]
     Dates: end: 20040430

REACTIONS (1)
  - CARDIAC ARREST [None]
